FAERS Safety Report 18589232 (Version 1)
Quarter: 2020Q4

REPORT INFORMATION
  Report Type: Other
  Country: FR (occurrence: FR)
  Receive Date: 20201208
  Receipt Date: 20201208
  Transmission Date: 20210114
  Serious: Yes (Other)
  Sender: FDA-Public Use
  Company Number: FR-ROCHE-2724998

PATIENT

DRUGS (4)
  1. MYCOPHENOLATE MOFETIL. [Suspect]
     Active Substance: MYCOPHENOLATE MOFETIL
     Indication: SYSTEMIC SCLERODERMA
     Dosage: DOSE LESS THAN OR EQUAL TO 2G/DAY
     Route: 065
  2. AZATHIOPRINE. [Suspect]
     Active Substance: AZATHIOPRINE
     Indication: SYSTEMIC SCLERODERMA
     Dosage: DOSE: LESS THAN OR EQUAL TO 100 MG/DAY
     Route: 065
  3. METHOTREXATE. [Suspect]
     Active Substance: METHOTREXATE
     Indication: SYSTEMIC SCLERODERMA
     Dosage: DOSE: LESS THAN OR EQUAL TO 15 MG/WEEK
     Route: 065
  4. CYCLOPHOSPHAMIDE. [Suspect]
     Active Substance: CYCLOPHOSPHAMIDE
     Indication: SYSTEMIC SCLERODERMA
     Dosage: DOSE: LESS THAN OR EQUAL TO 1 MG/KG ORAL/DAY OR LESS THAN OR EQUAL TO 750 MG INTRAVENOUSLY/MONTH
     Route: 048

REACTIONS (10)
  - Cardiac failure [Unknown]
  - Oesophageal stenosis [Unknown]
  - Pyelonephritis acute [Unknown]
  - Intestinal pseudo-obstruction [Unknown]
  - Pneumonia bacterial [Unknown]
  - Cholecystitis acute [Unknown]
  - Cardiomyopathy [Unknown]
  - Pneumonia [Unknown]
  - Scleroderma renal crisis [Unknown]
  - Bronchiolitis [Unknown]
